FAERS Safety Report 9028827 (Version 1)
Quarter: 2013Q1

REPORT INFORMATION
  Report Type: Spontaneous
  Country: PH (occurrence: PH)
  Receive Date: 20130124
  Receipt Date: 20130124
  Transmission Date: 20140127
  Serious: Yes (Other)
  Sender: FDA-Public Use
  Company Number: PH-GENZYME-THYM-1003612

PATIENT
  Age: 36 Year
  Sex: Female
  Weight: 72 kg

DRUGS (5)
  1. THYMOGLOBULINE [Suspect]
     Indication: IMMUNOSUPPRESSANT DRUG THERAPY
     Dosage: 100 MG, QD
     Route: 065
     Dates: start: 20130113, end: 20130113
  2. THYMOGLOBULINE [Suspect]
     Dosage: 100 MG, QD
     Route: 065
     Dates: start: 20130114, end: 20130114
  3. SOLU MEDROL [Concomitant]
     Indication: PREMEDICATION
     Dosage: 250 MG, QD
     Route: 042
     Dates: start: 20130113, end: 20130113
  4. PARACETAMOL [Concomitant]
     Indication: PREMEDICATION
     Dosage: 300 MG, QD
     Route: 042
     Dates: start: 20130113, end: 20130113
  5. DIPHENHYDRAMINE [Concomitant]
     Indication: PREMEDICATION
     Dosage: 50 MG, QD
     Route: 065
     Dates: start: 20130113, end: 20130113

REACTIONS (1)
  - Hypersensitivity [Recovered/Resolved]
